FAERS Safety Report 5271804-0 (Version None)
Quarter: 2007Q1

REPORT INFORMATION
  Report Type: 
  Country: None (occurrence: None)
  Receive Date: 20070316
  Receipt Date: 20070228
  Transmission Date: 20070707
  Serious: Yes (Disabling, Other)
  Sender: FDA-Public Use
  Company Number: 2007JP000944

PATIENT
  Age: 80 Year
  Sex: Female
  Weight: 36.9 kg

DRUGS (13)
  1. TACROLIMUS CAPSULES (TACROLIMUS) CAPSULE [Suspect]
     Indication: RHEUMATOID ARTHRITIS
     Dosage: SEE IMAGE
     Route: 048
     Dates: start: 20061204, end: 20061227
  2. TACROLIMUS CAPSULES (TACROLIMUS) CAPSULE [Suspect]
     Indication: RHEUMATOID ARTHRITIS
     Dosage: SEE IMAGE
     Route: 048
     Dates: start: 20061228, end: 20070112
  3. TACROLIMUS CAPSULES (TACROLIMUS) CAPSULE [Suspect]
     Indication: RHEUMATOID ARTHRITIS
     Dosage: SEE IMAGE
     Route: 048
     Dates: start: 20070113
  4. VOLTAREN [Suspect]
     Dosage: 75 MG, UNKNOWN/D, ORAL
     Route: 048
     Dates: end: 20061221
  5. PREDNISOLONE [Concomitant]
  6. METHOTREXATE (METHOTREXATE SODIUM) PER ORAL NOS [Concomitant]
  7. AZULFIDINE EN PER ORAL NOS [Concomitant]
  8. PARIET (RABEPRAZOLE SODIUM) PER ORAL NOS [Concomitant]
  9. FOLIAMIN (FOLIC ACID) PER ORAL NOS [Concomitant]
  10. MUCOSTA (REBAMIPIDE) PER ORAL NOS [Concomitant]
  11. BAKTAR (SULFAMETHOXAZOLE, TRIMETHOPRIM) PER ORAL NOS [Concomitant]
  12. BENET (RISEDRONATE SODIUM) PER ORAL NOS [Concomitant]
  13. CYTOTEC (MISOPROSTOL) PER ORAL NOS [Concomitant]

REACTIONS (3)
  - ANGINA PECTORIS [None]
  - FALL [None]
  - GASTRIC ULCER HAEMORRHAGE [None]
